FAERS Safety Report 10283651 (Version 1)
Quarter: 2014Q3

REPORT INFORMATION
  Report Type: Spontaneous
  Country: FR (occurrence: None)
  Receive Date: 20140702
  Receipt Date: 20140702
  Transmission Date: 20150326
  Serious: Yes (Hospitalization)
  Sender: FDA-Public Use
  Company Number: SYM-2014-22493

PATIENT
  Age: 66 Year
  Sex: Male

DRUGS (11)
  1. CEFTRIAXONE (CEFTRIAXONE) [Suspect]
     Active Substance: CEFTRIAXONE
     Indication: PRODUCT USED FOR UNKNOWN INDICATION
     Route: 042
     Dates: start: 20131105, end: 20131106
  2. STAGID (METFORMIN EMBONATE) [Concomitant]
     Active Substance: METFORMIN PAMOATE
  3. FLAGYL [Suspect]
     Active Substance: METRONIDAZOLE\METRONIDAZOLE HYDROCHLORIDE
     Indication: PRODUCT USED FOR UNKNOWN INDICATION
     Route: 048
     Dates: end: 20131125
  4. TAMSULOSIN HYDROCHLORIDE (TAMSULOSIN HYDROCHLORIDE) [Concomitant]
     Active Substance: TAMSULOSIN HYDROCHLORIDE
  5. OFLOCET [Suspect]
     Active Substance: OFLOXACIN
     Indication: PRODUCT USED FOR UNKNOWN INDICATION
     Route: 048
     Dates: start: 20130611, end: 20131113
  6. ROCEPHINE [Suspect]
     Active Substance: CEFTRIAXONE SODIUM
     Indication: PRODUCT USED FOR UNKNOWN INDICATION
     Route: 042
     Dates: start: 20131203, end: 20131204
  7. DIAMICRON (GLICLAZIDE) [Concomitant]
  8. LASILIX FAIBLE (FUROSEMIDE) [Concomitant]
  9. DIFFU K (POTASSIUM CHLORIDE) [Concomitant]
  10. AMOXICILLIN (AMOXICILLIN) [Suspect]
     Active Substance: AMOXICILLIN
     Indication: PRODUCT USED FOR UNKNOWN INDICATION
     Route: 048
     Dates: start: 20131230, end: 20140121
  11. RAMIPRIL (RAMIPRIL) [Concomitant]
     Active Substance: RAMIPRIL

REACTIONS (3)
  - Urinary tract infection [None]
  - Clostridium difficile colitis [None]
  - Weight decreased [None]

NARRATIVE: CASE EVENT DATE: 20131106
